FAERS Safety Report 17799204 (Version 1)
Quarter: 2020Q2

REPORT INFORMATION
  Report Type: Report from Study
  Country: CN (occurrence: CN)
  Receive Date: 20200518
  Receipt Date: 20200518
  Transmission Date: 20200714
  Serious: Yes (Other)
  Sender: FDA-Public Use
  Company Number: CN-ROCHE-2601293

PATIENT

DRUGS (3)
  1. TRASTUZUMAB. [Suspect]
     Active Substance: TRASTUZUMAB
     Indication: BREAST CANCER METASTATIC
     Dosage: MAINTENANCE DOSE: THE RECOMMENDED WEEKLY DOSE OF HERCEPTIN IS 2 MG/KG.
     Route: 041
  2. QI JIAO SHENG BAI [Concomitant]
     Indication: PROPHYLAXIS
     Dosage: 25 WEEKS OF TREATMENT
     Route: 048
  3. DOCETAXEL. [Suspect]
     Active Substance: DOCETAXEL
     Indication: BREAST CANCER METASTATIC
     Dosage: TREATED FOR 25 WEEKS.
     Route: 041

REACTIONS (6)
  - Bone marrow failure [Unknown]
  - Gastrointestinal disorder [Unknown]
  - Rash [Unknown]
  - Renal impairment [Unknown]
  - Hepatic function abnormal [Unknown]
  - Pyrexia [Unknown]
